FAERS Safety Report 8322192-4 (Version None)
Quarter: 2012Q2

REPORT INFORMATION
  Report Type: 
  Country: None (occurrence: None)
  Receive Date: 20120430
  Receipt Date: 20110721
  Transmission Date: 20120825
  Serious: No
  Sender: FDA-Public Use
  Company Number: US-COVIDIEN/TYCO HEALTHCARE/MALLINCKRODT-T201101460

PATIENT
  Sex: Male

DRUGS (5)
  1. WARFARIN SODIUM [Concomitant]
     Indication: ATRIAL FIBRILLATION
     Dosage: 5 MG, QD
     Route: 048
  2. CARTIA XT                          /00489701/ [Concomitant]
     Indication: ATRIAL FIBRILLATION
     Dosage: UNK
  3. STOOL SOFTENER [Concomitant]
     Dosage: UNK
  4. HYDROCODONE BITARTRATE + ACETAMINOPHEN [Suspect]
     Indication: BACK PAIN
     Dosage: 5/500 MG, ONE TABLET AT NIGHT
     Route: 048
     Dates: start: 20110718, end: 20110719
  5. HYDROCODONE BITARTRATE + ACETAMINOPHEN [Suspect]
     Dosage: 5/500; TOOK A TOTAL OF THREE TABLETS
     Route: 048
     Dates: start: 20110701, end: 20110720

REACTIONS (5)
  - EXPIRED DRUG ADMINISTERED [None]
  - INSOMNIA [None]
  - CONSTIPATION [None]
  - DRUG INEFFECTIVE [None]
  - DRUG DIVERSION [None]
